FAERS Safety Report 6493706-4 (Version None)
Quarter: 2009Q4

REPORT INFORMATION
  Report Type: 
  Country: None (occurrence: None)
  Receive Date: 20091214
  Receipt Date: 20091204
  Transmission Date: 20100525
  Serious: Yes (Other)
  Sender: FDA-Public Use
  Company Number: FR-AMGEN-US366542

PATIENT
  Sex: Female
  Weight: 60 kg

DRUGS (7)
  1. ENBREL [Suspect]
     Indication: PSORIASIS
     Route: 058
     Dates: start: 20090915
  2. ENBREL [Suspect]
     Indication: PSORIATIC ARTHROPATHY
  3. UVIT B [Suspect]
  4. GLUCOPHAGE [Concomitant]
     Dosage: UNKNOWN
     Route: 048
     Dates: start: 19960101
  5. NEXIUM [Concomitant]
     Dosage: OCCASIONALLY
  6. ALDACTAZINE [Concomitant]
     Dosage: UNKNOWN
     Route: 048
     Dates: start: 20070101
  7. ISOPTIN [Concomitant]
     Dosage: UNKNOWN
     Route: 048
     Dates: start: 20050101

REACTIONS (2)
  - RADIATION INTERACTION [None]
  - RADIATION SKIN INJURY [None]
